FAERS Safety Report 5022497-9 (Version None)
Quarter: 2006Q2

REPORT INFORMATION
  Report Type: 
  Country: None (occurrence: None)
  Receive Date: 20060605
  Receipt Date: 20060524
  Transmission Date: 20061013
  Serious: Yes (Hospitalization)
  Sender: FDA-Public Use
  Company Number: 33814

PATIENT
  Age: 77 Year
  Sex: Female

DRUGS (1)
  1. TRAVATAN [Suspect]
     Dosage: OPHT
     Route: 047
     Dates: start: 20050926

REACTIONS (1)
  - PAPILLOEDEMA [None]
